FAERS Safety Report 17387759 (Version 3)
Quarter: 2020Q1

REPORT INFORMATION
  Report Type: Spontaneous
  Country: JP (occurrence: JP)
  Receive Date: 20200206
  Receipt Date: 20200220
  Transmission Date: 20200409
  Serious: Yes (Other)
  Sender: FDA-Public Use
  Company Number: JP-PFIZER INC-2020050906

PATIENT
  Age: 1 Year
  Sex: Male
  Weight: 9.96 kg

DRUGS (12)
  1. ACTINOMYCIN D [Concomitant]
     Active Substance: DACTINOMYCIN
     Indication: NEPHROBLASTOMA
     Dosage: UNK, CYCLIC (AV REGIMEN X4 WK)/PREOPERATIVE/STAGE I
  2. VANCOMYCIN [Suspect]
     Active Substance: VANCOMYCIN
     Indication: FEBRILE NEUTROPENIA
     Dosage: UNK
  3. VINCRISTINE [Concomitant]
     Active Substance: VINCRISTINE
     Indication: NEPHROBLASTOMA
     Dosage: UNK, CYCLIC (AV X4 WK)/)/PREOPERATIVE/STAGE I
  4. VINCRISTINE [Concomitant]
     Active Substance: VINCRISTINE
     Dosage: UNK, CYCLIC (AV REGIMEN X4 WK)/PREOPERATIVE/STAGE II
  5. ACTINOMYCIN D [Concomitant]
     Active Substance: DACTINOMYCIN
     Dosage: UNK, CYCLIC (AV REGIMEN X4 WK)/PREOPERATIVE/STAGE III
  6. MEROPENEM. [Suspect]
     Active Substance: MEROPENEM
     Indication: FEBRILE NEUTROPENIA
     Dosage: UNK
  7. ACTINOMYCIN D [Concomitant]
     Active Substance: DACTINOMYCIN
     Dosage: UNK, CYCLIC (AV REGIMEN X4 WK)/PREOPERATIVE/STAGE II
  8. VINCRISTINE [Concomitant]
     Active Substance: VINCRISTINE
     Dosage: UNK, CYCLIC (AVD REGIMEN X 6 WK)/PREOPERATIVE/STAGE IV
  9. ACTINOMYCIN D [Concomitant]
     Active Substance: DACTINOMYCIN
     Dosage: UNK, CYCLIC (AVD REGIMEN X6 WK)/PREOPERATIVE/STAGE IV
  10. CASPOFUNGIN ACETATE. [Concomitant]
     Active Substance: CASPOFUNGIN ACETATE
     Indication: DIURETIC THERAPY
     Dosage: UNK
  11. VINCRISTINE [Concomitant]
     Active Substance: VINCRISTINE
     Dosage: UNK, CYCLIC (AV REGIMEN X4 WK)/PREOPERATIVE/STAGE III
  12. DOXORUBICIN [Concomitant]
     Active Substance: DOXORUBICIN
     Indication: NEPHROBLASTOMA
     Dosage: UNK, CYCLIC (AVD REGIMEN X6 WK)/PREOPERATIVE/STAGE I

REACTIONS (2)
  - Enteritis infectious [Unknown]
  - Clostridium difficile infection [Unknown]
